FAERS Safety Report 8241872-2 (Version None)
Quarter: 2012Q1

REPORT INFORMATION
  Report Type: 
  Country: None (occurrence: None)
  Receive Date: 20120328
  Receipt Date: 20120315
  Transmission Date: 20120608
  Serious: Yes (Hospitalization, Other)
  Sender: FDA-Public Use
  Company Number: US-MYLANLABS-2012S1006292

PATIENT
  Sex: Female
  Weight: 87.54 kg

DRUGS (28)
  1. SULFATRIM-DS [Concomitant]
  2. SEPTRA [Concomitant]
  3. LEVAQUIN [Concomitant]
  4. GLUCOPHAGE [Concomitant]
  5. ZYRTEC [Concomitant]
  6. TESSALON [Concomitant]
  7. NAPROXEN [Concomitant]
  8. CODEINE SULFATE [Concomitant]
  9. NEXIUM [Concomitant]
  10. ASPIRIN [Concomitant]
  11. CIPROFLOXACIN HCL [Concomitant]
  12. PREVACID [Concomitant]
  13. MACROBID [Concomitant]
  14. DETROL LA [Concomitant]
  15. AMITRIPTYLINE HCL [Concomitant]
  16. CELEBREX [Concomitant]
  17. HYDROCODONE [Concomitant]
  18. ALBUTEROL [Concomitant]
  19. PRAVACHOL [Concomitant]
  20. DARVOCET [Concomitant]
  21. ULTRAM [Concomitant]
  22. POTASSIUM [Concomitant]
  23. ACTOS [Concomitant]
  24. ZOLOFT [Concomitant]
  25. DIGOXIN [Suspect]
     Indication: PRODUCT USED FOR UNKNOWN INDICATION
     Dates: start: 20041207, end: 20090709
  26. COZAAR [Concomitant]
  27. NORVASC [Concomitant]
  28. BEXTRA /01400702/ [Concomitant]

REACTIONS (62)
  - ATRIAL FIBRILLATION [None]
  - SYNCOPE [None]
  - CHEST PAIN [None]
  - CYSTITIS [None]
  - DYSPNOEA [None]
  - ELECTROCARDIOGRAM ABNORMAL [None]
  - GRANULOMA [None]
  - LOCAL SWELLING [None]
  - NAUSEA [None]
  - OBESITY [None]
  - POLYURIA [None]
  - RENAL ATROPHY [None]
  - DIABETES MELLITUS [None]
  - COUGH [None]
  - CYSTOSCOPY ABNORMAL [None]
  - SUPRAVENTRICULAR TACHYCARDIA [None]
  - ATRIOVENTRICULAR BLOCK FIRST DEGREE [None]
  - PYELONEPHRITIS [None]
  - DYSURIA [None]
  - LITHOTRIPSY [None]
  - OSTEOPOROSIS [None]
  - POLLAKIURIA [None]
  - URINARY TRACT INFECTION [None]
  - SINUS BRADYCARDIA [None]
  - ANGINA PECTORIS [None]
  - BACK PAIN [None]
  - INTERVERTEBRAL DISC DEGENERATION [None]
  - LABORATORY TEST ABNORMAL [None]
  - NEPHROLITHIASIS [None]
  - SICK SINUS SYNDROME [None]
  - URETERAL STENT INSERTION [None]
  - VOMITING [None]
  - HYDRONEPHROSIS [None]
  - NEPHRECTOMY [None]
  - ABDOMINAL PAIN [None]
  - BRADYCARDIA [None]
  - CHEST X-RAY ABNORMAL [None]
  - DIZZINESS [None]
  - FALL [None]
  - FATIGUE [None]
  - SNEEZING [None]
  - UROGRAM ABNORMAL [None]
  - FLANK PAIN [None]
  - PNEUMONITIS [None]
  - ATROPHIC VULVOVAGINITIS [None]
  - CARDIAC PACEMAKER INSERTION [None]
  - CARDIOMEGALY [None]
  - DEPRESSION [None]
  - DIARRHOEA [None]
  - DYSPNOEA EXERTIONAL [None]
  - ESCHERICHIA INFECTION [None]
  - LACERATION [None]
  - PAIN IN EXTREMITY [None]
  - PYREXIA [None]
  - BRONCHITIS [None]
  - ARTHRALGIA [None]
  - BLOOD PRESSURE INCREASED [None]
  - CARDIAC STRESS TEST ABNORMAL [None]
  - ORTHOPNOEA [None]
  - PALPITATIONS [None]
  - PYELOCALIECTASIS [None]
  - SHOULDER ARTHROPLASTY [None]
